FAERS Safety Report 4591937-1 (Version None)
Quarter: 2005Q1

REPORT INFORMATION
  Report Type: 
  Country: None (occurrence: None)
  Receive Date: 20050222
  Receipt Date: 20050210
  Transmission Date: 20050727
  Serious: Yes (Other)
  Sender: FDA-Public Use
  Company Number: 200510616BCC

PATIENT
  Sex: Male

DRUGS (1)
  1. ALKA-SELTZER PLUS [Suspect]
     Indication: NASOPHARYNGITIS

REACTIONS (1)
  - NEPHROLITHIASIS [None]
